FAERS Safety Report 5682559-X (Version None)
Quarter: 2008Q1

REPORT INFORMATION
  Report Type: 
  Country: None (occurrence: None)
  Receive Date: 20080327
  Receipt Date: 20071214
  Transmission Date: 20080703
  Serious: No
  Sender: FDA-Public Use
  Company Number: US-BRISTOL-MYERS SQUIBB COMPANY-14016000

PATIENT
  Age: 57 Year
  Sex: Female
  Weight: 68 kg

DRUGS (6)
  1. ORENCIA [Suspect]
     Dosage: DRUG INTERRUPTED IN NOV-2007 HAD 6 TREATMENTS.
     Route: 042
     Dates: start: 20070601
  2. CELEBREX [Concomitant]
  3. NEXIUM [Concomitant]
  4. PROZAC [Concomitant]
  5. CARDIZEM [Concomitant]
  6. AMBIEN [Concomitant]

REACTIONS (2)
  - BRONCHITIS [None]
  - PNEUMONIA [None]
